FAERS Safety Report 10225639 (Version 1)
Quarter: 2014Q2

REPORT INFORMATION
  Report Type: Spontaneous
  Country: US (occurrence: US)
  Receive Date: 20140609
  Receipt Date: 20140609
  Transmission Date: 20141212
  Serious: No
  Sender: FDA-Public Use
  Company Number: US-ASTELLAS-2013US011582

PATIENT
  Age: 58 Year
  Sex: Male

DRUGS (1)
  1. PROGRAF [Suspect]
     Indication: RENAL TRANSPLANT
     Dosage: 6 MG MORNING, 5 MG EVENING
     Route: 048

REACTIONS (3)
  - Chest discomfort [Unknown]
  - Joint swelling [Unknown]
  - Cough [Unknown]
